FAERS Safety Report 14548023 (Version 1)
Quarter: 2018Q1

REPORT INFORMATION
  Report Type: Spontaneous
  Country: GB (occurrence: GB)
  Receive Date: 20180219
  Receipt Date: 20180219
  Transmission Date: 20180509
  Serious: Yes (Hospitalization, Other)
  Sender: FDA-Public Use
  Company Number: GB-NOVOPROD-586702

PATIENT
  Age: 22 Year
  Sex: Female

DRUGS (4)
  1. MIXTARD HUMAN 70/30 [Suspect]
     Active Substance: INSULIN HUMAN
     Dosage: 55 U, QD (25 UNITS AM AND 30 UNITS PM)
     Route: 065
  2. ISOPHANE INSULIN [Concomitant]
     Active Substance: INSULIN NOS
     Dosage: BEFORE BEDTIME
     Route: 065
  3. MIXTARD HUMAN 70/30 [Suspect]
     Active Substance: INSULIN HUMAN
     Indication: TYPE 1 DIABETES MELLITUS
     Dosage: 50 U, QD (24 UNITS AM AND 26 UNITS PM)
     Route: 065
  4. ACTRAPID [Concomitant]
     Active Substance: INSULIN HUMAN
     Dosage: THREE TIMES DAILY
     Route: 065

REACTIONS (4)
  - Exposure during pregnancy [Recovered/Resolved]
  - Diabetic ketoacidosis [Unknown]
  - Foetal hypokinesia [Unknown]
  - Polyhydramnios [Unknown]
